FAERS Safety Report 4325347-9 (Version None)
Quarter: 2004Q1

REPORT INFORMATION
  Report Type: 
  Country: None (occurrence: None)
  Receive Date: 20040324
  Receipt Date: 20040310
  Transmission Date: 20041129
  Serious: Yes (Hospitalization)
  Sender: FDA-Public Use
  Company Number: A01200202250

PATIENT
  Age: 48 Year
  Sex: Male

DRUGS (8)
  1. PLAVIX [Suspect]
     Dosage: 75 MG
     Route: 048
     Dates: start: 20011125, end: 20011208
  2. ASA - (ACETYLSALICYLIC ACID) - UNKNOWN - UNIT DOSE: UNKNOWN [Suspect]
     Dosage: 325 MG
     Dates: start: 20011125, end: 20011208
  3. PRAVASTATIN SODIUM [Suspect]
     Dosage: 40 MG QD ORAL
     Route: 048
     Dates: start: 20011204
  4. PLACEBO - UNKNOWN - UNIT DOSE: UNKNOWN [Suspect]
     Dosage: 400 MG QD ORAL
     Route: 048
     Dates: start: 20011214
  5. PLACEBO [Concomitant]
  6. TOPROL-XL [Concomitant]
  7. ALTACE [Concomitant]
  8. IMDUR [Concomitant]

REACTIONS (4)
  - ANGINA UNSTABLE [None]
  - DRUG INEFFECTIVE [None]
  - DRUG INTERACTION [None]
  - POLYP COLORECTAL [None]
